FAERS Safety Report 12679191 (Version 1)
Quarter: 2016Q3

REPORT INFORMATION
  Report Type: Spontaneous
  Country: JP (occurrence: JP)
  Receive Date: 20160824
  Receipt Date: 20160824
  Transmission Date: 20161109
  Serious: Yes (Life-Threatening, Other)
  Sender: FDA-Public Use
  Company Number: JP-ACCORD-043335

PATIENT
  Age: 44 Year
  Sex: Male

DRUGS (3)
  1. TRASTUZUMAB [Suspect]
     Active Substance: TRASTUZUMAB
     Indication: SALIVARY GLAND CANCER
     Dosage: TRIWEEKLY
  2. ZOLEDRONIC ACID [Concomitant]
     Active Substance: ZOLEDRONIC ACID
     Indication: SALIVARY GLAND CANCER
  3. DOCETAXEL. [Suspect]
     Active Substance: DOCETAXEL
     Indication: SALIVARY GLAND CANCER
     Dosage: TRIWEEKLY

REACTIONS (5)
  - Hypocalcaemia [Unknown]
  - Oedema [Unknown]
  - Decreased appetite [Unknown]
  - Leukopenia [Unknown]
  - Anaemia [Unknown]
